FAERS Safety Report 23708066 (Version 1)
Quarter: 2024Q2

REPORT INFORMATION
  Report Type: Report from Study
  Country: US (occurrence: US)
  Receive Date: 20240404
  Receipt Date: 20240404
  Transmission Date: 20240715
  Serious: Yes (Other)
  Sender: FDA-Public Use
  Company Number: US-TEVA-VS-3176407

PATIENT
  Sex: Female

DRUGS (25)
  1. AUSTEDO [Suspect]
     Active Substance: DEUTETRABENAZINE
     Indication: Huntington^s disease
     Dosage: INCREASED DOSE
     Route: 048
  2. AUSTEDO [Suspect]
     Active Substance: DEUTETRABENAZINE
     Indication: Huntington^s disease
     Route: 048
  3. ADVIL [Concomitant]
     Active Substance: IBUPROFEN
  4. Divalproex S [Concomitant]
  5. LEVOTHYROXINE [Concomitant]
     Active Substance: LEVOTHYROXINE\LEVOTHYROXINE SODIUM
  6. MORPHINE SULFATE [Concomitant]
     Active Substance: MORPHINE SULFATE
  7. Oxybutynin C [Concomitant]
  8. SODIUM CHLORIDE [Concomitant]
     Active Substance: SODIUM CHLORIDE
  9. DULOXETINE HYDROCHLORIDE [Concomitant]
     Active Substance: DULOXETINE HYDROCHLORIDE
  10. GABAPENTIN [Concomitant]
     Active Substance: GABAPENTIN
  11. LISINOPRIL [Concomitant]
     Active Substance: LISINOPRIL
  12. METFORMIN HYDROCHLORIDE [Concomitant]
     Active Substance: METFORMIN HYDROCHLORIDE
  13. ACETAMINOPHEN [Concomitant]
     Active Substance: ACETAMINOPHEN
  14. ATORVASTATIN [Concomitant]
     Active Substance: ATORVASTATIN
  15. CALCIUM\VITAMIN D [Concomitant]
     Active Substance: CALCIUM\VITAMIN D
     Dosage: 600+10 MG
  16. HYDROCODONE [Concomitant]
     Active Substance: HYDROCODONE
     Dosage: 10-325 MG
  17. Metoprolol S [Concomitant]
  18. BACLOFEN [Concomitant]
     Active Substance: BACLOFEN
  19. BACLOFEN [Concomitant]
     Active Substance: BACLOFEN
  20. DONEPEZIL HYDROCHLORIDE [Concomitant]
     Active Substance: DONEPEZIL HYDROCHLORIDE
  21. OLANZAPINE [Concomitant]
     Active Substance: OLANZAPINE
  22. VITAMINS [Concomitant]
     Active Substance: VITAMINS
     Dosage: 2.7-0.8 MG
  23. RISPERIDONE [Concomitant]
     Active Substance: RISPERIDONE
  24. SENNA [Concomitant]
     Active Substance: SENNA LEAF\SENNOSIDES\SENNOSIDES A AND B
  25. SUMATRIPTAN [Concomitant]
     Active Substance: SUMATRIPTAN

REACTIONS (7)
  - Fall [Not Recovered/Not Resolved]
  - Dyskinesia [Not Recovered/Not Resolved]
  - Depression [Not Recovered/Not Resolved]
  - Migraine [Not Recovered/Not Resolved]
  - Diabetes mellitus [Not Recovered/Not Resolved]
  - Memory impairment [Not Recovered/Not Resolved]
  - Blood cholesterol increased [Not Recovered/Not Resolved]
